FAERS Safety Report 6577911-4 (Version None)
Quarter: 2010Q1

REPORT INFORMATION
  Report Type: 
  Country: None (occurrence: None)
  Receive Date: 20100211
  Receipt Date: 20100201
  Transmission Date: 20100710
  Serious: Yes (Death)
  Sender: FDA-Public Use
  Company Number: JP-ROCHE-684328

PATIENT
  Age: 60 Year
  Sex: Male

DRUGS (2)
  1. TAMIFLU [Suspect]
     Indication: INFLUENZA SEROLOGY
     Route: 048
     Dates: start: 20100121
  2. RELENZA [Concomitant]
     Dosage: ROUTE: RESPIRATORY (INHALATION)
     Route: 055
     Dates: start: 20100121

REACTIONS (3)
  - ANTI-NEUTROPHIL CYTOPLASMIC ANTIBODY POSITIVE VASCULITIS [None]
  - PACHYMENINGITIS [None]
  - PNEUMONIA INFLUENZAL [None]
